FAERS Safety Report 11998283 (Version 1)
Quarter: 2016Q1

REPORT INFORMATION
  Report Type: Report from Study
  Country: US (occurrence: US)
  Receive Date: 20160203
  Receipt Date: 20160203
  Transmission Date: 20160526
  Serious: Yes (Other)
  Sender: FDA-Public Use
  Company Number: US-GILEAD-2016-0195590

PATIENT
  Age: 45 Year
  Sex: Male

DRUGS (1)
  1. LEDIPASVIR/SOFOSBUVIR [Suspect]
     Active Substance: LEDIPASVIR\SOFOSBUVIR
     Indication: CHRONIC HEPATITIS C
     Dosage: 1 DF, UNK
     Route: 048
     Dates: start: 20150521, end: 20151105

REACTIONS (10)
  - Gallbladder enlargement [Unknown]
  - Splenomegaly [Unknown]
  - Abdominal pain [Unknown]
  - Blood phosphorus increased [Unknown]
  - Platelet count decreased [Unknown]
  - Back disorder [Unknown]
  - Fatigue [Unknown]
  - Hepatic lesion [Unknown]
  - Activated partial thromboplastin time shortened [Unknown]
  - Red blood cell count decreased [Unknown]

NARRATIVE: CASE EVENT DATE: 201512
